FAERS Safety Report 7271068-2 (Version None)
Quarter: 2011Q1

REPORT INFORMATION
  Report Type: 
  Country: None (occurrence: None)
  Receive Date: 20110202
  Receipt Date: 20110124
  Transmission Date: 20110831
  Serious: Yes (Death, Hospitalization)
  Sender: FDA-Public Use
  Company Number: CA-ELI_LILLY_AND_COMPANY-CA201101006629

PATIENT
  Age: 105 Year
  Sex: Female

DRUGS (10)
  1. OMEPRAZOLE [Concomitant]
     Dosage: UNK, UNKNOWN
     Route: 065
  2. TEVAX /00052801/ [Concomitant]
     Dosage: UNK, UNKNOWN
     Route: 065
  3. CALCIUM [Concomitant]
     Dosage: UNK, UNKNOWN
     Route: 065
  4. AMLODIPINE [Concomitant]
     Dosage: UNK, UNKNOWN
     Route: 065
  5. AGGRENOX [Concomitant]
     Dosage: UNK, UNKNOWN
     Route: 065
  6. DOCUSATE SODIUM [Concomitant]
     Dosage: UNK, UNKNOWN
     Route: 065
  7. SODIUM BICARBONATE [Concomitant]
     Dosage: UNK, UNKNOWN
     Route: 065
  8. FORTEO [Suspect]
     Indication: OSTEOPOROSIS
     Dosage: 20 UG, DAILY (1/D)
     Route: 058
     Dates: start: 20101112
  9. ROCALTROL [Concomitant]
     Dosage: UNK, UNKNOWN
     Route: 065
  10. REPLAVITE [Concomitant]
     Dosage: UNK, UNKNOWN
     Route: 065

REACTIONS (2)
  - ABDOMINAL PAIN [None]
  - DEATH [None]
